FAERS Safety Report 6265040-9 (Version None)
Quarter: 2009Q3

REPORT INFORMATION
  Report Type: 
  Country: None (occurrence: None)
  Receive Date: 20090708
  Receipt Date: 20090708
  Transmission Date: 20100115
  Serious: Yes (Hospitalization, Other)
  Sender: FDA-Public Use
  Company Number: None

PATIENT
  Age: 66 Year
  Sex: Female
  Weight: 50.8029 kg

DRUGS (1)
  1. ACTONEL [Suspect]
     Indication: OSTEOPOROSIS PROPHYLAXIS
     Dosage: 150 MG (1 TAB) ONCE A MONTH BY MOUTH
     Route: 048
     Dates: start: 20090308

REACTIONS (9)
  - BONE PAIN [None]
  - DISCOMFORT [None]
  - DYSPNOEA [None]
  - EYE PAIN [None]
  - HEART RATE INCREASED [None]
  - MUSCULOSKELETAL CHEST PAIN [None]
  - NAUSEA [None]
  - PAIN [None]
  - PHOTOPHOBIA [None]
